FAERS Safety Report 11223575 (Version 2)
Quarter: 2015Q3

REPORT INFORMATION
  Report Type: Report from Study
  Country: US (occurrence: US)
  Receive Date: 20150629
  Receipt Date: 20150721
  Transmission Date: 20151125
  Serious: Yes (Life-Threatening, Other)
  Sender: FDA-Public Use
  Company Number: US-MERCK-1506USA013380

PATIENT

DRUGS (4)
  1. ZOLINZA [Suspect]
     Active Substance: VORINOSTAT
     Indication: NEUROBLASTOMA
     Dosage: 230 MG/M2 PER DAY, 7 CYCLES
     Route: 048
  2. DOXORUBICIN [Suspect]
     Active Substance: DOXORUBICIN
     Indication: NEUROBLASTOMA
     Dosage: 30 MG/M2 PER DOSE, 7 CYCLES
  3. SORAFENIB [Suspect]
     Active Substance: SORAFENIB
     Indication: NEUROBLASTOMA
     Dosage: 200 MG/M2 PER DOSE, BID, 7 CYCLES
  4. DOXYCYCLINE. [Suspect]
     Active Substance: DOXYCYCLINE
     Indication: NEUROBLASTOMA
     Dosage: 4 MG/KG PER DAY, 7 CYCLES

REACTIONS (3)
  - Pneumonia fungal [Unknown]
  - Neutropenia [Unknown]
  - Bacterial infection [Unknown]
